FAERS Safety Report 24715653 (Version 2)
Quarter: 2025Q2

REPORT INFORMATION
  Report Type: Spontaneous
  Country: PL (occurrence: PL)
  Receive Date: 20241210
  Receipt Date: 20250509
  Transmission Date: 20250717
  Serious: Yes (Other)
  Sender: AUROBINDO
  Company Number: PL-BRISTOL-MYERS SQUIBB COMPANY-2024-181143

PATIENT
  Age: 70 Year
  Sex: Female

DRUGS (7)
  1. CARBOPLATIN [Suspect]
     Active Substance: CARBOPLATIN
     Indication: Squamous cell carcinoma of lung
     Route: 065
     Dates: start: 20230419
  2. NIVOLUMAB [Suspect]
     Active Substance: NIVOLUMAB
     Indication: Squamous cell carcinoma of lung
     Route: 065
     Dates: start: 20230419
  3. IPILIMUMAB [Suspect]
     Active Substance: IPILIMUMAB
     Indication: Squamous cell carcinoma of lung
     Route: 065
     Dates: start: 20230419
  4. PACLITAXEL [Suspect]
     Active Substance: PACLITAXEL
     Indication: Squamous cell carcinoma of lung
     Route: 065
     Dates: start: 20230419
  5. AMOXICILLIN\CLAVULANIC ACID [Concomitant]
     Active Substance: AMOXICILLIN\CLAVULANIC ACID
     Indication: Urinary tract infection
     Route: 065
  6. CEFUROXIME [Concomitant]
     Active Substance: CEFUROXIME
     Indication: Urinary tract infection
     Route: 065
  7. FOSFOMYCIN [Concomitant]
     Active Substance: FOSFOMYCIN
     Indication: Urinary tract infection
     Route: 065

REACTIONS (8)
  - Immune-mediated hypothyroidism [Unknown]
  - Immune-mediated hepatic disorder [Unknown]
  - Immune-mediated adrenal insufficiency [Unknown]
  - Nephritis [Unknown]
  - Renal failure [Recovered/Resolved]
  - Blood creatinine increased [Unknown]
  - Escherichia infection [Unknown]
  - Escherichia test positive [Unknown]

NARRATIVE: CASE EVENT DATE: 20230712
